FAERS Safety Report 10955159 (Version 1)
Quarter: 2015Q1

REPORT INFORMATION
  Report Type: Report from Study
  Country: DE (occurrence: DE)
  Receive Date: 20150326
  Receipt Date: 20150326
  Transmission Date: 20150721
  Serious: Yes (Other)
  Sender: FDA-Public Use
  Company Number: DE-ROCHE-1552891

PATIENT
  Age: 34 Year
  Sex: Female

DRUGS (1)
  1. ZELBORAF [Suspect]
     Active Substance: VEMURAFENIB
     Indication: METASTATIC MALIGNANT MELANOMA
     Route: 065

REACTIONS (9)
  - Nausea [Unknown]
  - Chills [Unknown]
  - Mass [Recovered/Resolved]
  - Pain [Unknown]
  - Arthralgia [Unknown]
  - Vomiting [Unknown]
  - Pyrexia [Unknown]
  - Fatigue [Unknown]
  - Dermatitis allergic [Unknown]
